FAERS Safety Report 9701560 (Version 1)
Quarter: 2013Q4

REPORT INFORMATION
  Report Type: Spontaneous
  Country: GB (occurrence: GB)
  Receive Date: 20131121
  Receipt Date: 20131121
  Transmission Date: 20140711
  Serious: Yes (Hospitalization)
  Sender: FDA-Public Use
  Company Number: GB-ASTRAZENECA-2013SE84088

PATIENT
  Age: 79 Year
  Sex: Female

DRUGS (6)
  1. ESOMEPRAZOLE [Suspect]
     Route: 048
  2. ATORVASTATIN [Concomitant]
  3. ISOSORBIDE MONONITRATE [Concomitant]
  4. WARFARIN [Concomitant]
  5. CLOPIDOGREL [Concomitant]
  6. BENDROFLUMETHIAZIDE [Concomitant]

REACTIONS (4)
  - Hypophosphataemia [Recovered/Resolved]
  - Hypocalcaemia [Recovered/Resolved]
  - Hyperparathyroidism secondary [Recovering/Resolving]
  - Hypomagnesaemia [Recovered/Resolved]
